FAERS Safety Report 17581419 (Version 4)
Quarter: 2021Q1

REPORT INFORMATION
  Report Type: Spontaneous
  Country: US (occurrence: US)
  Receive Date: 20200325
  Receipt Date: 20210312
  Transmission Date: 20210419
  Serious: Yes (Hospitalization, Other)
  Sender: FDA-Public Use
  Company Number: US-GILEAD-2020-0455995

PATIENT
  Age: 50 Year
  Sex: Male
  Weight: 86.17 kg

DRUGS (58)
  1. ACTOS [Concomitant]
     Active Substance: PIOGLITAZONE HYDROCHLORIDE
  2. ASPIRIN [ACETYLSALICYLIC ACID] [Concomitant]
     Active Substance: ASPIRIN
  3. ATORVASTATIN [Concomitant]
     Active Substance: ATORVASTATIN
  4. CEFUROXIME. [Concomitant]
     Active Substance: CEFUROXIME
  5. HYDROCODONE BITARTRATE AND ACETAMINOPHEN [Concomitant]
     Active Substance: ACETAMINOPHEN\HYDROCODONE BITARTRATE
  6. METOPROLOL TARTRATE. [Concomitant]
     Active Substance: METOPROLOL TARTRATE
  7. SODIUM BICARBONATE. [Concomitant]
     Active Substance: SODIUM BICARBONATE
  8. ATRIPLA [Suspect]
     Active Substance: EFAVIRENZ\EMTRICITABINE\TENOFOVIR DISOPROXIL FUMARATE
     Indication: HIV INFECTION
     Dosage: UNK
     Route: 048
     Dates: start: 2006
  9. DOXYCYCLINE HYCLATE. [Concomitant]
     Active Substance: DOXYCYCLINE HYCLATE
  10. FENOFIBRATE. [Concomitant]
     Active Substance: FENOFIBRATE
  11. HYDROCHLOROTHIAZIDE. [Concomitant]
     Active Substance: HYDROCHLOROTHIAZIDE
  12. LIPITOR [Concomitant]
     Active Substance: ATORVASTATIN CALCIUM
  13. ZINC. [Concomitant]
     Active Substance: ZINC
  14. ABACAVIR. [Concomitant]
     Active Substance: ABACAVIR
  15. EDARBI [Concomitant]
     Active Substance: AZILSARTAN KAMEDOXOMIL
  16. FLEXERIL [CEFIXIME] [Concomitant]
     Active Substance: CEFIXIME
  17. FLONASE [Concomitant]
     Active Substance: FLUTICASONE PROPIONATE
  18. LOSARTAN. [Concomitant]
     Active Substance: LOSARTAN
  19. NEXIUM [Concomitant]
     Active Substance: ESOMEPRAZOLE MAGNESIUM
  20. NIACIN. [Concomitant]
     Active Substance: NIACIN
  21. OXYCODONE AND ACETAMINOPHEN [Concomitant]
     Active Substance: ACETAMINOPHEN\OXYCODONE HYDROCHLORIDE
  22. TOPROL XL [Concomitant]
     Active Substance: METOPROLOL SUCCINATE
  23. VITAMIN B12 [Concomitant]
     Active Substance: CYANOCOBALAMIN
  24. ZOLOFT [Concomitant]
     Active Substance: SERTRALINE HYDROCHLORIDE
  25. TRAZODONE [Concomitant]
     Active Substance: TRAZODONE HYDROCHLORIDE
  26. ATRIPLA [Suspect]
     Active Substance: EFAVIRENZ\EMTRICITABINE\TENOFOVIR DISOPROXIL FUMARATE
     Dosage: UNK
     Route: 048
     Dates: start: 20150705, end: 20190328
  27. FOLIC ACID. [Concomitant]
     Active Substance: FOLIC ACID
  28. LAMIVUDINE. [Concomitant]
     Active Substance: LAMIVUDINE
  29. MELATONIN [Concomitant]
     Active Substance: MELATONIN
  30. PIOGLITAZONE. [Concomitant]
     Active Substance: PIOGLITAZONE
  31. PLAVIX [Concomitant]
     Active Substance: CLOPIDOGREL BISULFATE
  32. TRIGLIDE [Concomitant]
     Active Substance: FENOFIBRATE
  33. VITAMIN D2 [Concomitant]
     Active Substance: ERGOCALCIFEROL
  34. FUROSEMIDE. [Concomitant]
     Active Substance: FUROSEMIDE
  35. TIVICAY [Concomitant]
     Active Substance: DOLUTEGRAVIR SODIUM
  36. AMOXICILLIN. [Concomitant]
     Active Substance: AMOXICILLIN
  37. CIPROFLOXACIN. [Concomitant]
     Active Substance: CIPROFLOXACIN
  38. CLONIDINE. [Concomitant]
     Active Substance: CLONIDINE
  39. JANUVIA [Concomitant]
     Active Substance: SITAGLIPTIN PHOSPHATE
  40. LANTUS [Concomitant]
     Active Substance: INSULIN GLARGINE
  41. TRICOR [TETRACYCLINE HYDROCHLORIDE] [Concomitant]
     Active Substance: TETRACYCLINE HYDROCHLORIDE
  42. AMARYL [Concomitant]
     Active Substance: GLIMEPIRIDE
  43. CYCLOBENZAPRINE. [Concomitant]
     Active Substance: CYCLOBENZAPRINE
  44. IBUPROFEN. [Concomitant]
     Active Substance: IBUPROFEN
  45. PROMETHAZINE [Concomitant]
     Active Substance: PROMETHAZINE HYDROCHLORIDE
  46. SERTRALINE [Concomitant]
     Active Substance: SERTRALINE HYDROCHLORIDE
  47. ZOFRAN [Concomitant]
     Active Substance: ONDANSETRON HYDROCHLORIDE
  48. CLOPIDROGEL SANDOZ [Concomitant]
     Active Substance: CLOPIDOGREL BISULFATE
  49. ENALAPRIL MALEATE. [Concomitant]
     Active Substance: ENALAPRIL MALEATE
  50. FERROUS SULFATE. [Concomitant]
     Active Substance: FERROUS SULFATE
  51. FEXOFENADINE [Concomitant]
     Active Substance: FEXOFENADINE HYDROCHLORIDE
  52. OMEPRAZOLE. [Concomitant]
     Active Substance: OMEPRAZOLE
  53. POTASSIUM CHLORIDE. [Concomitant]
     Active Substance: POTASSIUM CHLORIDE
  54. VITAMIN D3 [Concomitant]
     Active Substance: CHOLECALCIFEROL
  55. AMLODIPINE BESILATE [Concomitant]
     Active Substance: AMLODIPINE BESYLATE
  56. NORVASC [Concomitant]
     Active Substance: AMLODIPINE BESYLATE
  57. PROTONIX [OMEPRAZOLE] [Concomitant]
     Active Substance: OMEPRAZOLE
  58. GLIMEPIRIDE. [Concomitant]
     Active Substance: GLIMEPIRIDE

REACTIONS (12)
  - Depression [Unknown]
  - Pain [Not Recovered/Not Resolved]
  - Emotional distress [Not Recovered/Not Resolved]
  - Acute kidney injury [Unknown]
  - Acute kidney injury [Unknown]
  - Economic problem [Not Recovered/Not Resolved]
  - End stage renal disease [Unknown]
  - Chronic kidney disease [Not Recovered/Not Resolved]
  - Anhedonia [Not Recovered/Not Resolved]
  - Emotional distress [Unknown]
  - Renal failure [Not Recovered/Not Resolved]
  - Anxiety [Not Recovered/Not Resolved]

NARRATIVE: CASE EVENT DATE: 201612
